FAERS Safety Report 9174227 (Version 1)
Quarter: 2013Q1

REPORT INFORMATION
  Report Type: Spontaneous
  Country: US (occurrence: US)
  Receive Date: 20130320
  Receipt Date: 20130320
  Transmission Date: 20140127
  Serious: Yes (Other)
  Sender: FDA-Public Use
  Company Number: US-PFIZER INC-2013089113

PATIENT
  Age: 64 Year
  Sex: Female
  Weight: 61.2 kg

DRUGS (6)
  1. PREMARIN [Suspect]
     Indication: VULVOVAGINAL PRURITUS
     Dosage: 1 G, DAILY FOR THE FIRST TWO WEEKS
     Route: 067
     Dates: start: 20130213
  2. PREMARIN [Suspect]
     Indication: VULVOVAGINAL ERYTHEMA
     Dosage: 1 G, 3 TIMES A WEEK
     Route: 067
  3. PREMARIN [Suspect]
     Indication: VULVOVAGINAL SWELLING
  4. PRAVASTATIN SODIUM [Suspect]
     Indication: BLOOD CHOLESTEROL INCREASED
     Dosage: 20 MG, DAILY
  5. OMEGA 3 [Concomitant]
     Dosage: 2000 MG, DAILY
  6. VITAMIN D3 [Concomitant]
     Dosage: UNK

REACTIONS (2)
  - Myasthenia gravis [Unknown]
  - Drug ineffective [Unknown]
